FAERS Safety Report 7345847-7 (Version None)
Quarter: 2011Q1

REPORT INFORMATION
  Report Type: 
  Country: None (occurrence: None)
  Receive Date: 20110311
  Receipt Date: 20110302
  Transmission Date: 20110831
  Serious: No
  Sender: FDA-Public Use
  Company Number: US-BIOGENIDEC-2010BI027523

PATIENT
  Sex: Female

DRUGS (1)
  1. TYSABRI [Suspect]
     Indication: MULTIPLE SCLEROSIS
     Route: 042
     Dates: start: 20061215, end: 20100525

REACTIONS (9)
  - URINARY RETENTION [None]
  - URINARY TRACT INFECTION [None]
  - ROTATOR CUFF SYNDROME [None]
  - PYREXIA [None]
  - WHITE BLOOD CELL COUNT INCREASED [None]
  - OPTIC NEURITIS [None]
  - MUSCULOSKELETAL PAIN [None]
  - ARTHRITIS [None]
  - INSOMNIA [None]
